FAERS Safety Report 8743958 (Version 2)
Quarter: 2012Q4

REPORT INFORMATION
  Report Type: 
  Country: None (occurrence: None)
  Receive Date: 20120824
  Receipt Date: 20120921
  Transmission Date: 20130627
  Serious: Yes (Other)
  Sender: FDA-Public Use
  Company Number: ME-PFIZER INC-2012206160

PATIENT
  Age: 70 Year
  Sex: Male

DRUGS (2)
  1. LYRICA [Suspect]
     Indication: NEURALGIA
     Dosage: 75 mg, 2x/day
     Route: 048
     Dates: start: 20120730, end: 201208
  2. XALATAN [Concomitant]
     Indication: GLAUCOMA

REACTIONS (2)
  - Endophthalmitis [Recovered/Resolved]
  - Eyelid ptosis [Recovered/Resolved]
